FAERS Safety Report 6679873-8 (Version None)
Quarter: 2010Q2

REPORT INFORMATION
  Report Type: 
  Country: None (occurrence: None)
  Receive Date: 20100409
  Receipt Date: 20100326
  Transmission Date: 20101027
  Serious: Yes (Hospitalization)
  Sender: FDA-Public Use
  Company Number: 015334

PATIENT
  Age: 65 Year
  Sex: Female

DRUGS (5)
  1. PRIALT [Suspect]
     Indication: BACK PAIN
     Dosage: 0.042 UG, ONCE/HOUR, INTRATHECAL
     Route: 037
     Dates: start: 20091001
  2. PRIALT [Suspect]
     Dosage: 0.375 UG, ONCE/HOUR, INTRATHECAL
     Route: 037
  3. PRIALT [Suspect]
     Dosage: 0.416 UG, ONCE/HOUR INTRATHECAL
     Dates: end: 20100326
  4. HYDROMORPHONE HCL [Concomitant]
  5. BUPIVACAINE (BUPIVACAINE) [Concomitant]

REACTIONS (8)
  - ATAXIA [None]
  - CONFUSIONAL STATE [None]
  - DRUG INEFFECTIVE [None]
  - DYSPHAGIA [None]
  - HALLUCINATIONS, MIXED [None]
  - PNEUMONIA ASPIRATION [None]
  - PSYCHOTIC DISORDER [None]
  - WITHDRAWAL SYNDROME [None]
